FAERS Safety Report 8974255 (Version 1)
Quarter: 2012Q4

REPORT INFORMATION
  Report Type: Spontaneous
  Country: US (occurrence: None)
  Receive Date: 20121217
  Receipt Date: 20121217
  Transmission Date: 20130627
  Serious: Yes (Other)
  Sender: FDA-Public Use
  Company Number: None

PATIENT
  Sex: Female
  Weight: 68 kg

DRUGS (1)
  1. AMBI EVEN AND CLEAR FOAMING CLEANSER [Suspect]

REACTIONS (3)
  - Skin burning sensation [None]
  - Skin exfoliation [None]
  - Skin ulcer [None]
